FAERS Safety Report 20128301 (Version 3)
Quarter: 2021Q4

REPORT INFORMATION
  Report Type: Report from Study
  Country: KR (occurrence: KR)
  Receive Date: 20211129
  Receipt Date: 20211213
  Transmission Date: 20220304
  Serious: Yes (Death, Life-Threatening, Hospitalization)
  Sender: FDA-Public Use
  Company Number: KR-CELLTRION INC.-2021KR016015

PATIENT

DRUGS (12)
  1. INVESTIGATIONAL BIOSIMILARS [Suspect]
     Active Substance: INVESTIGATIONAL BIOSIMILARS
     Indication: Neoplasm malignant
     Dosage: 6 MG/KG (SINGLE DOSE: 440 MG), ONCE EVERY 3 WEEKS
     Route: 042
     Dates: start: 20210914, end: 20210914
  2. INVESTIGATIONAL BIOSIMILARS [Suspect]
     Active Substance: INVESTIGATIONAL BIOSIMILARS
     Dosage: 6 MG/KG (SINGLE DOSE: 330 MG), ONCE EVERY 3 WEEKS
     Route: 042
     Dates: start: 20211005, end: 20211005
  3. INVESTIGATIONAL BIOSIMILARS [Suspect]
     Active Substance: INVESTIGATIONAL BIOSIMILARS
     Dosage: 6 MG/KG (SINGLE DOSE: 380 MG), ONCE EVERY 3 WEEKS
     Route: 042
     Dates: start: 20211026, end: 20211026
  4. INVESTIGATIONAL BIOSIMILARS [Suspect]
     Active Substance: INVESTIGATIONAL BIOSIMILARS
     Dosage: UNK
     Route: 042
     Dates: start: 20210914, end: 20211026
  5. CETAMADOL [Concomitant]
     Indication: Pain management
     Dosage: 1 T, TID
     Route: 048
     Dates: start: 20211116, end: 20211127
  6. DIETARY SUPPLEMENT\HERBALS\MILK THISTLE [Concomitant]
     Active Substance: DIETARY SUPPLEMENT\HERBALS\MILK THISTLE
     Indication: Prophylaxis
     Dosage: 1 C, BID
     Route: 048
     Dates: start: 20211026, end: 20211115
  7. URSODIOL [Concomitant]
     Active Substance: URSODIOL
     Indication: Prophylaxis
     Dosage: 1 T, BID
     Route: 048
     Dates: start: 20211026, end: 20211115
  8. LASIX [Concomitant]
     Active Substance: FUROSEMIDE
     Indication: Diuretic therapy
     Dosage: 1 T, BPC
     Route: 048
     Dates: start: 20211005, end: 20211115
  9. LIPILOU [Concomitant]
     Indication: Prophylaxis
     Dosage: 1 T, QD
     Route: 048
     Dates: start: 20210404, end: 20211127
  10. METFORMIN HYDROCHLORIDE\PIOGLITAZONE HYDROCHLORIDE [Concomitant]
     Active Substance: METFORMIN HYDROCHLORIDE\PIOGLITAZONE HYDROCHLORIDE
     Indication: Diabetes prophylaxis
     Dosage: 1 T, QD
     Route: 048
     Dates: start: 20211012, end: 20211127
  11. JANUMET [Concomitant]
     Active Substance: METFORMIN HYDROCHLORIDE\SITAGLIPTIN PHOSPHATE
     Indication: Diabetes prophylaxis
     Dosage: 1 T, BID
     Route: 048
     Dates: start: 20211011, end: 20211104
  12. LOBEGLITAZONE SULFATE [Concomitant]
     Active Substance: LOBEGLITAZONE SULFATE
     Indication: Diabetes prophylaxis
     Dosage: 1 T, QD
     Route: 048
     Dates: start: 20211011, end: 20211104

REACTIONS (3)
  - Condition aggravated [Fatal]
  - Cardiac arrest [Fatal]
  - Blood bilirubin increased [Not Recovered/Not Resolved]

NARRATIVE: CASE EVENT DATE: 20211116
